FAERS Safety Report 17769994 (Version 1)
Quarter: 2020Q2

REPORT INFORMATION
  Report Type: Spontaneous
  Country: US (occurrence: US)
  Receive Date: 20200511
  Receipt Date: 20200511
  Transmission Date: 20200714
  Serious: No
  Sender: FDA-Public Use
  Company Number: None

PATIENT
  Age: 54 Year
  Sex: Male

DRUGS (1)
  1. HARVONI [Suspect]
     Active Substance: LEDIPASVIR\SOFOSBUVIR
     Dosage: OTHER DOSE:90-400 MG;?
     Route: 048
     Dates: start: 202003

REACTIONS (3)
  - Road traffic accident [None]
  - Memory impairment [None]
  - Fall [None]

NARRATIVE: CASE EVENT DATE: 20200511
